FAERS Safety Report 23600547 (Version 1)
Quarter: 2024Q1

REPORT INFORMATION
  Report Type: Spontaneous
  Country: DE (occurrence: DE)
  Receive Date: 20240306
  Receipt Date: 20240306
  Transmission Date: 20240410
  Serious: Yes (Life-Threatening, Hospitalization)
  Sender: FDA-Public Use
  Company Number: DE-Desitin-2024-00197

PATIENT
  Age: 79 Year
  Sex: Female

DRUGS (4)
  1. NAPROXEN [Concomitant]
     Active Substance: NAPROXEN
     Indication: Product used for unknown indication
     Route: 065
  2. LEVETIRACETAM [Interacting]
     Active Substance: LEVETIRACETAM
     Indication: Drug therapy
     Dosage: 2000.000MG
     Route: 065
  3. METHOTREXATE [Interacting]
     Active Substance: METHOTREXATE
     Indication: Rheumatoid arthritis
     Dosage: 7.500MG
     Route: 065
  4. PANTOPRAZOLE [Interacting]
     Active Substance: PANTOPRAZOLE
     Indication: Product used for unknown indication
     Route: 065

REACTIONS (1)
  - Drug interaction [Recovered/Resolved]
